FAERS Safety Report 23055673 (Version 2)
Quarter: 2023Q4

REPORT INFORMATION
  Report Type: Spontaneous
  Country: CN (occurrence: CN)
  Receive Date: 20231011
  Receipt Date: 20231012
  Transmission Date: 20240110
  Serious: Yes (Life-Threatening, Hospitalization)
  Sender: FDA-Public Use
  Company Number: CN-BAUSCH-BL-2023-014771

PATIENT
  Age: 36 Year
  Sex: Male

DRUGS (6)
  1. DEXAMETHASONE [Suspect]
     Active Substance: DEXAMETHASONE
     Indication: Acute lymphocytic leukaemia
     Dosage: TWO CYCLES
     Route: 065
  2. VINDESINE [Suspect]
     Active Substance: VINDESINE
     Indication: Acute lymphocytic leukaemia
     Dosage: TWO CYCLES
     Route: 065
  3. IDARUBICIN [Suspect]
     Active Substance: IDARUBICIN
     Indication: Acute lymphocytic leukaemia
     Dosage: TWO CYCLES
     Route: 065
  4. CYCLOPHOSPHAMIDE [Suspect]
     Active Substance: CYCLOPHOSPHAMIDE
     Indication: Acute lymphocytic leukaemia
     Dosage: TWO CYCLES
     Route: 065
  5. VINCRISTINE [Suspect]
     Active Substance: VINCRISTINE
     Indication: Acute lymphocytic leukaemia
     Dosage: TWO CYCLES
     Route: 065
  6. PREDNISONE [Suspect]
     Active Substance: PREDNISONE
     Indication: Acute lymphocytic leukaemia
     Dosage: TWO CYCLES
     Route: 065

REACTIONS (2)
  - Pulmonary mucormycosis [Recovered/Resolved]
  - Pathological fracture [Recovered/Resolved]
